FAERS Safety Report 7353366-7 (Version None)
Quarter: 2011Q1

REPORT INFORMATION
  Report Type: 
  Country: None (occurrence: None)
  Receive Date: 20110310
  Receipt Date: 20110310
  Transmission Date: 20110831
  Serious: Yes (Other)
  Sender: FDA-Public Use
  Company Number: None

PATIENT
  Sex: Female
  Weight: 69.8539 kg

DRUGS (1)
  1. ALPHAGAN P [Suspect]
     Indication: CATARACT
     Dosage: ONE DROP TWICE DAILY EVERY DAY
     Dates: start: 20110222, end: 20110223

REACTIONS (3)
  - OCULAR HYPERAEMIA [None]
  - EYE IRRITATION [None]
  - BLINDNESS TRANSIENT [None]
